FAERS Safety Report 15751636 (Version 1)
Quarter: 2018Q4

REPORT INFORMATION
  Report Type: Spontaneous
  Country: GB (occurrence: GB)
  Receive Date: 20181221
  Receipt Date: 20181221
  Transmission Date: 20190205
  Serious: Yes (Other)
  Sender: FDA-Public Use
  Company Number: GB-PFIZER INC-2018517944

PATIENT
  Age: 75 Year
  Sex: Male
  Weight: 78 kg

DRUGS (12)
  1. AMIAS [Concomitant]
     Active Substance: CANDESARTAN CILEXETIL
     Dosage: 1 DF, 1X/DAY (NIGHT)
     Dates: start: 20180615
  2. WARFARIN SODIUM. [Concomitant]
     Active Substance: WARFARIN SODIUM
     Dosage: 1 DF, 1X/DAY (DOSE AS WARFARIN CLINIC DIRECTS. TAKE AT 6PM.)
     Dates: start: 20180615
  3. PREDNISOLONE. [Concomitant]
     Active Substance: PREDNISOLONE
     Dosage: 3 DF, 1X/DAY (AND REDUCE AS DIRECTED)
     Dates: start: 20180621
  4. NITROFURANTOIN. [Concomitant]
     Active Substance: NITROFURANTOIN
     Dosage: UNK FOR MEN AND URINARY TRACT INFECTIONS IN PREGNANCY (AVOID AT TERM).
     Dates: start: 20181112, end: 20181119
  5. GLYCERYL TRINITRATE [Concomitant]
     Active Substance: NITROGLYCERIN
     Dosage: 1 DF, AS NEEDED (PUFF)
     Dates: start: 20180615
  6. DICLOFENAC DIETHYLAMINE [Concomitant]
     Active Substance: DICLOFENAC DIETHYLAMINE
     Dosage: UNK (APPLY UP TO 3 TIMES A DAY.)
     Dates: start: 20180615
  7. EPLERENONE. [Suspect]
     Active Substance: EPLERENONE
     Dosage: 12.5 MG, ALTERNATE DAY
     Dates: start: 20181024
  8. SODIUM CITRATE. [Concomitant]
     Active Substance: SODIUM CITRATE
     Dosage: 3 DF, 1X/DAY
     Dates: start: 20181112, end: 20181114
  9. FLUCLOXACILLIN [Concomitant]
     Active Substance: FLUCLOXACILLIN
     Dosage: 4 DF, 1X/DAY
     Dates: start: 20181009, end: 20181016
  10. COLCHICINE. [Concomitant]
     Active Substance: COLCHICINE
     Dosage: 1 DF, 1X/DAY (WITH MAXIMUM OF 12 IN 4 DAYS)
     Dates: start: 20180615
  11. LANSOPRAZOLE. [Concomitant]
     Active Substance: LANSOPRAZOLE
     Dosage: 1 DF, 1X/DAY
     Dates: start: 20180615
  12. FUROSEMIDE. [Concomitant]
     Active Substance: FUROSEMIDE
     Dosage: 2 DF, 1X/DAY (MORNING AND AT 6PM.)
     Dates: start: 20180615

REACTIONS (3)
  - Dyspnoea [Recovered/Resolved]
  - Oedema [Unknown]
  - Heart rate increased [Recovered/Resolved]

NARRATIVE: CASE EVENT DATE: 20181120
